FAERS Safety Report 10314941 (Version 2)
Quarter: 2014Q3

REPORT INFORMATION
  Report Type: Report from Study
  Country: US (occurrence: US)
  Receive Date: 20140718
  Receipt Date: 20140718
  Transmission Date: 20150326
  Serious: Yes (Life-Threatening, Hospitalization)
  Sender: FDA-Public Use
  Company Number: US-B.I. PHARMACEUTICALS,INC./RIDGEFIELD-2014-BI-23499BI

PATIENT
  Age: 74 Year
  Sex: Female
  Weight: 70 kg

DRUGS (17)
  1. LISINOPRIL. [Concomitant]
     Active Substance: LISINOPRIL
     Indication: CARDIAC DISORDER
     Dosage: 20 MG
     Route: 048
     Dates: start: 20140612
  2. PANTOPRAZOLE [Concomitant]
     Active Substance: PANTOPRAZOLE SODIUM
     Indication: PROPHYLAXIS
     Dosage: 40 MG
     Route: 048
     Dates: start: 20140612
  3. DECETABINE [Suspect]
     Active Substance: DECITABINE
     Indication: ACUTE MYELOID LEUKAEMIA
     Dosage: FORMULATION: INJ; STRENGTH: 20 MG/M2; TOTAL DAILY DOSE: D1 + D5
     Route: 042
     Dates: start: 20140515, end: 20140519
  4. ATENOLOL. [Concomitant]
     Active Substance: ATENOLOL
     Indication: HYPERTENSION
     Dosage: 50 MG
     Route: 048
     Dates: start: 20140507
  5. VOLASERTIB [Suspect]
     Active Substance: VOLASERTIB
     Dosage: FORMULATION: INJ; STRENGTH: 350; TOTAL DAILY DOSE:  D1 + D15
     Route: 042
     Dates: start: 20140630, end: 20140630
  6. CRESTOR [Concomitant]
     Active Substance: ROSUVASTATIN CALCIUM
     Indication: BLOOD CHOLESTEROL ABNORMAL
     Dosage: 5 MG
     Route: 048
     Dates: start: 20140507
  7. LEVAQUIN [Concomitant]
     Active Substance: LEVOFLOXACIN
     Indication: INFECTION PROPHYLAXIS
     Dosage: 500 MG
     Route: 048
     Dates: start: 20140507
  8. AMIODARONE [Concomitant]
     Active Substance: AMIODARONE
     Indication: CARDIAC DISORDER
     Dosage: 200 MG
     Route: 048
     Dates: start: 20140612
  9. AUGMENTIN [Concomitant]
     Active Substance: AMOXICILLIN\CLAVULANATE POTASSIUM
     Indication: INFECTION PROPHYLAXIS
     Dosage: 875 MG
     Route: 048
     Dates: start: 20140617
  10. DECETABINE [Suspect]
     Active Substance: DECITABINE
     Dosage: FORMULATION: INJ; STRENGTH: 20 MG/M2; TOTAL DAILY DOSE: D1 + D5
     Route: 042
     Dates: start: 20140613, end: 20140617
  11. CANCIDAS [Concomitant]
     Active Substance: CASPOFUNGIN ACETATE
     Indication: ANTIFUNGAL TREATMENT
     Dosage: 50 MG
     Route: 042
     Dates: start: 20140612
  12. XANAX [Concomitant]
     Active Substance: ALPRAZOLAM
     Indication: ANXIETY
     Dosage: 0.25 MG
     Route: 048
     Dates: start: 20040507
  13. PROCARDIA [Concomitant]
     Active Substance: NIFEDIPINE
     Indication: CARDIAC DISORDER
     Dosage: 60 MG
     Route: 048
     Dates: start: 20140612
  14. VOLASERTIB [Suspect]
     Active Substance: VOLASERTIB
     Dosage: FORMULATION: INJ; STRENGTH: 350; TOTAL DAILY DOSE:  D1 + D15
     Route: 042
     Dates: start: 20140613, end: 20140613
  15. PROPAFENONE. [Concomitant]
     Active Substance: PROPAFENONE
     Indication: CARDIAC DISORDER
     Dosage: 150 MG
     Route: 048
     Dates: start: 20140507
  16. VALACYCLOVIR [Concomitant]
     Active Substance: VALACYCLOVIR HYDROCHLORIDE
     Indication: ANTIVIRAL PROPHYLAXIS
     Dosage: 500 MG
     Route: 048
     Dates: start: 20140612
  17. VOLASERTIB [Suspect]
     Active Substance: VOLASERTIB
     Indication: ACUTE MYELOID LEUKAEMIA
     Dosage: FORMULATION: INJ; STRENGTH: 350 M; TOTAL DAILY DOSE: D1 + D15
     Route: 042
     Dates: start: 20140515, end: 20140529

REACTIONS (9)
  - Supraventricular tachycardia [Recovered/Resolved]
  - Fatigue [Not Recovered/Not Resolved]
  - Pneumonia [Not Recovered/Not Resolved]
  - Conjunctival haemorrhage [None]
  - Subdural haematoma [Recovered/Resolved]
  - Thrombocytopenia [Not Recovered/Not Resolved]
  - Epistaxis [None]
  - Neutropenia [Not Recovered/Not Resolved]
  - Acute sinusitis [None]

NARRATIVE: CASE EVENT DATE: 20140516
